FAERS Safety Report 5806994-1 (Version None)
Quarter: 2008Q3

REPORT INFORMATION
  Report Type: 
  Country: None (occurrence: None)
  Receive Date: 20080708
  Receipt Date: 20080626
  Transmission Date: 20090109
  Serious: Yes (Other)
  Sender: FDA-Public Use
  Company Number: 2008AL007795

PATIENT
  Age: 80 Year
  Sex: Male

DRUGS (4)
  1. DICLOFENAC SODIUM [Suspect]
     Indication: OSTEOARTHRITIS
     Dosage: 75 MG; BID; PO
     Route: 048
     Dates: start: 20071119, end: 20080114
  2. MELOXICAM [Suspect]
     Indication: OSTEOARTHRITIS
     Dosage: 15 MG; PO
     Route: 048
     Dates: start: 20080116, end: 20080208
  3. BENDROFLUMETHIAZIDE [Concomitant]
  4. DOXAZOSIN MESYLATE [Concomitant]

REACTIONS (1)
  - DIVERTICULUM [None]
